FAERS Safety Report 10933345 (Version 1)
Quarter: 2015Q1

REPORT INFORMATION
  Report Type: Report from Study
  Country: US (occurrence: US)
  Receive Date: 20150320
  Receipt Date: 20150320
  Transmission Date: 20150721
  Serious: Yes (Other)
  Sender: FDA-Public Use
  Company Number: US-AMGEN-USASL2015025808

PATIENT
  Age: 61 Year
  Sex: Female

DRUGS (2)
  1. ENBREL [Suspect]
     Active Substance: ETANERCEPT
     Indication: PSORIATIC ARTHROPATHY
  2. ENBREL [Suspect]
     Active Substance: ETANERCEPT
     Indication: PSORIASIS
     Dosage: 50 MG, 2 TIMES/WK
     Route: 058
     Dates: start: 201401

REACTIONS (8)
  - Hypersensitivity [Unknown]
  - Large intestine polyp [Unknown]
  - Nasopharyngitis [Unknown]
  - Antinuclear antibody positive [Unknown]
  - Back pain [Unknown]
  - Pain [Unknown]
  - Large intestinal ulcer [Unknown]
  - Intestinal mass [Unknown]

NARRATIVE: CASE EVENT DATE: 201411
